FAERS Safety Report 5250487-X (Version None)
Quarter: 2007Q1

REPORT INFORMATION
  Report Type: 
  Country: None (occurrence: None)
  Receive Date: 20070228
  Receipt Date: 20060424
  Transmission Date: 20070707
  Serious: No
  Sender: FDA-Public Use
  Company Number: US-GLAXOSMITHKLINE-A0603012A

PATIENT
  Age: 28 Year
  Sex: Female

DRUGS (7)
  1. LAMICTAL [Suspect]
     Indication: BIPOLAR DISORDER
     Dosage: 25MG PER DAY
     Route: 048
     Dates: start: 20060401
  2. ATENOLOL [Concomitant]
  3. METHADONE HCL [Concomitant]
  4. ACIPHEX [Concomitant]
  5. SEROQUEL [Concomitant]
  6. AMBIEN [Concomitant]
  7. BENADRYL [Concomitant]

REACTIONS (2)
  - HYPOAESTHESIA [None]
  - MIGRAINE [None]
